FAERS Safety Report 6464922-2 (Version None)
Quarter: 2009Q4

REPORT INFORMATION
  Report Type: 
  Country: None (occurrence: None)
  Receive Date: 20091201
  Receipt Date: 20091124
  Transmission Date: 20100525
  Serious: Yes (Other)
  Sender: FDA-Public Use
  Company Number: D0059912A

PATIENT
  Sex: Female

DRUGS (8)
  1. REQUIP [Suspect]
     Indication: PARKINSONISM
     Dosage: 12MG PER DAY
     Route: 065
     Dates: start: 20081004, end: 20090102
  2. L-DOPA [Suspect]
     Indication: PARKINSONISM
     Dosage: 3.4ML PER DAY
     Route: 065
  3. AMANTADINE [Suspect]
     Route: 065
  4. ANTI-PARKINSON'S DISEASE MEDICATION [Concomitant]
     Route: 065
  5. METFORMIN HCL [Concomitant]
     Route: 065
  6. TORASEMIDE [Concomitant]
     Route: 065
  7. SEROQUEL [Concomitant]
     Route: 065
  8. NACOM [Concomitant]
     Route: 065

REACTIONS (12)
  - ABNORMAL BEHAVIOUR [None]
  - ALOPECIA [None]
  - ASTHENIA [None]
  - DRUG INEFFECTIVE [None]
  - DRUG INTERACTION [None]
  - DRY MOUTH [None]
  - DYSKINESIA [None]
  - HALLUCINATION [None]
  - HEAD DISCOMFORT [None]
  - HYPERHIDROSIS [None]
  - NAUSEA [None]
  - PSYCHOTIC DISORDER [None]
